FAERS Safety Report 9670185 (Version 1)
Quarter: 2013Q4

REPORT INFORMATION
  Report Type: Spontaneous
  Country: US (occurrence: None)
  Receive Date: 20131025
  Receipt Date: 20131025
  Transmission Date: 20140711
  Serious: Yes (Hospitalization)
  Sender: FDA-Public Use
  Company Number: 2013038480

PATIENT
  Age: 31 Year
  Sex: Male
  Weight: 108.86 kg

DRUGS (1)
  1. MONONINE [Suspect]
     Indication: HAEMORRHAGE
     Dosage: (4000 IU PRN)

REACTIONS (2)
  - Arthralgia [None]
  - Haematoma [None]
